FAERS Safety Report 7000565-X (Version None)
Quarter: 2010Q3

REPORT INFORMATION
  Report Type: 
  Country: None (occurrence: None)
  Receive Date: 20100920
  Receipt Date: 20100601
  Transmission Date: 20110219
  Serious: Yes (Hospitalization)
  Sender: FDA-Public Use
  Company Number: US-ASTRAZENECA-2010SE25220

PATIENT
  Sex: Male

DRUGS (3)
  1. SEROQUEL XR [Suspect]
     Indication: MAJOR DEPRESSION
     Route: 048
     Dates: start: 20100326, end: 20100101
  2. SEROQUEL XR [Suspect]
     Route: 048
  3. LEXAPRO [Concomitant]

REACTIONS (2)
  - DRUG DOSE OMISSION [None]
  - SUICIDAL IDEATION [None]
